FAERS Safety Report 5984733-1 (Version None)
Quarter: 2008Q4

REPORT INFORMATION
  Report Type: 
  Country: None (occurrence: None)
  Receive Date: 20081208
  Receipt Date: 20081205
  Transmission Date: 20090506
  Serious: Yes (Other)
  Sender: FDA-Public Use
  Company Number: JP-B.I. PHARMACEUTICALS,INC./RIDGEFIELD-2008-BP-17504NB

PATIENT
  Sex: Male
  Weight: 73.9 kg

DRUGS (1)
  1. MICARDIS [Suspect]
     Indication: HYPERTENSION
     Dosage: 20MG
     Route: 048
     Dates: start: 20081119, end: 20081119

REACTIONS (2)
  - ABDOMINAL DISTENSION [None]
  - LARYNGEAL OEDEMA [None]
